FAERS Safety Report 5603939-4 (Version None)
Quarter: 2008Q1

REPORT INFORMATION
  Report Type: 
  Country: None (occurrence: None)
  Receive Date: 20080124
  Receipt Date: 20080124
  Transmission Date: 20080703
  Serious: No
  Sender: FDA-Public Use
  Company Number: None

PATIENT
  Sex: Female

DRUGS (2)
  1. ISONIAZID [Suspect]
     Indication: TUBERCULIN TEST POSITIVE
     Dosage: 300MG DAILY ORAL
     Route: 048
     Dates: start: 20070917, end: 20071015
  2. ISONIAZID [Suspect]
     Indication: TUBERCULIN TEST POSITIVE
     Dosage: 300MG DAILY ORAL
     Route: 048
     Dates: start: 20071206, end: 20071217

REACTIONS (1)
  - URTICARIA [None]
